FAERS Safety Report 10207725 (Version 1)
Quarter: 2014Q2

REPORT INFORMATION
  Report Type: Spontaneous
  Country: US (occurrence: US)
  Receive Date: 20140530
  Receipt Date: 20140530
  Transmission Date: 20141212
  Serious: No
  Sender: FDA-Public Use
  Company Number: US-GLAXOSMITHKLINE-A1056584A

PATIENT
  Age: 69 Year
  Sex: Female

DRUGS (4)
  1. VENTOLIN [Suspect]
     Indication: ASTHMA
     Dosage: 2PUFF AS REQUIRED
     Route: 055
  2. CALAN SR [Concomitant]
  3. LORAZEPAM [Concomitant]
  4. WATER PILL [Concomitant]

REACTIONS (4)
  - Dysphonia [Unknown]
  - Dysphonia [Not Recovered/Not Resolved]
  - Dysgeusia [Unknown]
  - Product quality issue [Unknown]
